FAERS Safety Report 5425090-9 (Version None)
Quarter: 2007Q3

REPORT INFORMATION
  Report Type: 
  Country: None (occurrence: None)
  Receive Date: 20070824
  Receipt Date: 20070815
  Transmission Date: 20080115
  Serious: Yes (Other)
  Sender: FDA-Public Use
  Company Number: DE-JNJFOC-20070803100

PATIENT
  Sex: Male

DRUGS (1)
  1. ITRACOL 7 [Suspect]
     Indication: TINEA PEDIS
     Route: 065

REACTIONS (3)
  - BEDRIDDEN [None]
  - BURNING SENSATION [None]
  - PAIN [None]
